FAERS Safety Report 11020640 (Version 3)
Quarter: 2015Q2

REPORT INFORMATION
  Report Type: Spontaneous
  Country: US (occurrence: US)
  Receive Date: 20150413
  Receipt Date: 20150421
  Transmission Date: 20150821
  Serious: Yes (Hospitalization)
  Sender: FDA-Public Use
  Company Number: US-HORIZON-ACT-0058-2015

PATIENT
  Age: 25 Year
  Sex: Male

DRUGS (8)
  1. MESALAMINE. [Concomitant]
     Active Substance: MESALAMINE
  2. BACTRIM [Concomitant]
     Active Substance: SULFAMETHOXAZOLE\TRIMETHOPRIM
  3. MAGNESIUM [Concomitant]
     Active Substance: MAGNESIUM
     Route: 042
  4. ACTIMMUNE [Suspect]
     Active Substance: INTERFERON GAMMA-1B
     Indication: CHRONIC GRANULOMATOUS DISEASE
     Route: 058
  5. POTASSIUM [Concomitant]
     Active Substance: POTASSIUM
     Route: 048
  6. VITAMIN D [Concomitant]
     Active Substance: CHOLECALCIFEROL
  7. ZANTAC [Concomitant]
     Active Substance: RANITIDINE HYDROCHLORIDE
  8. PREDNISONE. [Concomitant]
     Active Substance: PREDNISONE

REACTIONS (4)
  - Adrenal insufficiency [Unknown]
  - Fungal infection [Recovering/Resolving]
  - Gastrooesophageal reflux disease [Unknown]
  - White blood cell count decreased [Unknown]

NARRATIVE: CASE EVENT DATE: 20150311
